FAERS Safety Report 24832793 (Version 2)
Quarter: 2025Q3

REPORT INFORMATION
  Report Type: Spontaneous
  Country: US (occurrence: US)
  Receive Date: 20250110
  Receipt Date: 20250816
  Transmission Date: 20251020
  Serious: No
  Sender: ALEXION PHARMACEUTICALS
  Company Number: US-ASTRAZENECA-202501USA005773US

PATIENT
  Age: 50 Year
  Sex: Male

DRUGS (2)
  1. ROSUVASTATIN [Suspect]
     Active Substance: ROSUVASTATIN
     Indication: Hidradenitis
  2. DAPAGLIFLOZIN [Suspect]
     Active Substance: DAPAGLIFLOZIN
     Indication: Hidradenitis

REACTIONS (4)
  - Acne [Recovering/Resolving]
  - Fistula [Recovering/Resolving]
  - Sinus disorder [Recovering/Resolving]
  - Product use issue [Unknown]
